FAERS Safety Report 6720252-2 (Version None)
Quarter: 2010Q2

REPORT INFORMATION
  Report Type: 
  Country: None (occurrence: None)
  Receive Date: 20100506
  Receipt Date: 20100427
  Transmission Date: 20101027
  Serious: Yes (Other)
  Sender: FDA-Public Use
  Company Number: 2010SP020278

PATIENT
  Age: 34 Year
  Sex: Female
  Weight: 68 kg

DRUGS (5)
  1. NUVARING [Suspect]
     Indication: CONTRACEPTION
     Dosage: QM;VAG
     Route: 067
     Dates: start: 20060101, end: 20100327
  2. CINABEL /00212501/ (CON.) [Concomitant]
  3. ZYRTEC /00884302/ (CON.) [Concomitant]
  4. TRIOVAL (CON.) [Concomitant]
  5. ACETAMINOPHEN (CON.) [Concomitant]

REACTIONS (14)
  - ANTEPARTUM HAEMORRHAGE [None]
  - ASTHMA [None]
  - DISCOMFORT [None]
  - DIZZINESS [None]
  - DRUG EXPOSURE DURING PREGNANCY [None]
  - HYPERTENSION [None]
  - INCORRECT STORAGE OF DRUG [None]
  - NASOPHARYNGITIS [None]
  - NAUSEA [None]
  - PREGNANCY WITH CONTRACEPTIVE DEVICE [None]
  - SELF-MEDICATION [None]
  - UTERINE LEIOMYOMA [None]
  - VAGINAL HAEMORRHAGE [None]
  - VOMITING [None]
